FAERS Safety Report 8602934-0 (Version None)
Quarter: 2012Q3

REPORT INFORMATION
  Report Type: 
  Country: None (occurrence: None)
  Receive Date: 20120817
  Receipt Date: 20120806
  Transmission Date: 20120928
  Serious: Yes (Hospitalization)
  Sender: FDA-Public Use
  Company Number: US-WATSON-2012-13940

PATIENT
  Age: 57 Year
  Sex: Female

DRUGS (2)
  1. TRELSTAR [Suspect]
     Indication: BREAST CANCER FEMALE
     Dosage: UNK
     Route: 030
     Dates: start: 20041209
  2. EXEMESTANE [Suspect]
     Indication: BREAST CANCER FEMALE
     Dosage: 25 MG, DAILY
     Route: 048
     Dates: start: 20041209

REACTIONS (1)
  - RADIUS FRACTURE [None]
